FAERS Safety Report 5166721-0 (Version None)
Quarter: 2006Q4

REPORT INFORMATION
  Report Type: 
  Country: None (occurrence: None)
  Receive Date: 20061204
  Receipt Date: 20061204
  Transmission Date: 20070319
  Serious: Yes (Other)
  Sender: FDA-Public Use
  Company Number: None

PATIENT
  Sex: Male
  Weight: 72.5755 kg

DRUGS (2)
  1. SOTRET [Suspect]
     Indication: ACNE
     Dosage: 40MG  Q PM  PO
     Route: 048
     Dates: start: 20060628, end: 20061115
  2. SOTRET [Suspect]
     Dosage: 30MG  Q AM  PO
     Route: 048

REACTIONS (3)
  - ANGER [None]
  - MOOD ALTERED [None]
  - SUICIDAL IDEATION [None]
